FAERS Safety Report 9791683 (Version 2)
Quarter: 2014Q1

REPORT INFORMATION
  Report Type: Spontaneous
  Country: IT (occurrence: IT)
  Receive Date: 20140102
  Receipt Date: 20140102
  Transmission Date: 20141002
  Serious: Yes (Life-Threatening)
  Sender: FDA-Public Use
  Company Number: IT-ROCHE-1293317

PATIENT
  Age: 51 Year
  Sex: Female

DRUGS (4)
  1. AVASTIN [Suspect]
     Indication: COLON CANCER METASTATIC
     Route: 042
     Dates: start: 20131003, end: 20131017
  2. FLUOROURACILE [Interacting]
     Indication: COLON CANCER METASTATIC
     Route: 040
     Dates: start: 20131003, end: 20131017
  3. FLUOROURACILE [Interacting]
     Route: 042
     Dates: start: 20131003, end: 20131017
  4. ELOXATIN [Interacting]
     Indication: COLON CANCER METASTATIC
     Route: 042
     Dates: start: 20131003, end: 20131017

REACTIONS (4)
  - Dyspnoea [Unknown]
  - Erythema [Unknown]
  - Nausea [Unknown]
  - Drug interaction [Unknown]
